FAERS Safety Report 7906950-3 (Version None)
Quarter: 2011Q4

REPORT INFORMATION
  Report Type: 
  Country: None (occurrence: None)
  Receive Date: 20111110
  Receipt Date: 20111012
  Transmission Date: 20120403
  Serious: No
  Sender: FDA-Public Use
  Company Number: US-COVIDIEN/TYCO HEALTHCARE/MALLINCKRODT-T201102387

PATIENT
  Age: 48 Year
  Sex: Female

DRUGS (6)
  1. BIOFLEX [Concomitant]
     Dosage: UNK
  2. PENNSAID [Suspect]
     Dosage: 20 GTT, BID
  3. PROTONIX [Concomitant]
     Dosage: UNK
  4. MULTI-VITAMINS [Concomitant]
     Dosage: UNK
  5. FLEXERIL [Concomitant]
     Dosage: UNK
  6. METOCLOPRAMIDE [Concomitant]
     Dosage: UNK

REACTIONS (1)
  - HYPERCHLORHYDRIA [None]
